FAERS Safety Report 9860831 (Version 1)
Quarter: 2014Q1

REPORT INFORMATION
  Report Type: Spontaneous
  Country: IT (occurrence: IT)
  Receive Date: 20140202
  Receipt Date: 20140202
  Transmission Date: 20141002
  Serious: No
  Sender: FDA-Public Use
  Company Number: IT-ALLERGAN-1301609US

PATIENT
  Age: 50 Year
  Sex: Female

DRUGS (1)
  1. VISTABEX [Suspect]
     Indication: SKIN WRINKLING
     Dosage: 50 UNITS, SINGLE
     Dates: start: 20130128, end: 20130128

REACTIONS (1)
  - Eyelid ptosis [Unknown]
